FAERS Safety Report 11122407 (Version 2)
Quarter: 2015Q3

REPORT INFORMATION
  Report Type: Spontaneous
  Country: US (occurrence: US)
  Receive Date: 20150519
  Receipt Date: 20150827
  Transmission Date: 20151125
  Serious: Yes (Other)
  Sender: FDA-Public Use
  Company Number: US-PURDUE-USA-2015-0123564

PATIENT
  Sex: Female

DRUGS (2)
  1. BUTRANS [Suspect]
     Active Substance: BUPRENORPHINE
     Indication: ROTATOR CUFF SYNDROME
  2. BUTRANS [Suspect]
     Active Substance: BUPRENORPHINE
     Indication: INTERVERTEBRAL DISC PROTRUSION
     Dosage: 20 MG, WEEKLY
     Route: 062
     Dates: start: 20150419

REACTIONS (14)
  - Application site scar [Unknown]
  - Joint destruction [Not Recovered/Not Resolved]
  - Burning sensation [Unknown]
  - Bone pain [Unknown]
  - Skin discolouration [Recovered/Resolved]
  - Pain in extremity [Unknown]
  - Musculoskeletal stiffness [Unknown]
  - Pain [Not Recovered/Not Resolved]
  - Application site scab [Unknown]
  - Application site burn [Unknown]
  - Application site pain [Unknown]
  - Erythema [Unknown]
  - Hyperventilation [Unknown]
  - Paraesthesia [Unknown]

NARRATIVE: CASE EVENT DATE: 20150419
